FAERS Safety Report 7296606-5 (Version None)
Quarter: 2011Q1

REPORT INFORMATION
  Report Type: 
  Country: None (occurrence: None)
  Receive Date: 20110216
  Receipt Date: 20110207
  Transmission Date: 20110831
  Serious: Yes (Other)
  Sender: FDA-Public Use
  Company Number: PHHY2011CA06244

PATIENT
  Sex: Female

DRUGS (2)
  1. ZOLEDRONIC [Suspect]
     Dosage: UNK
     Route: 042
     Dates: start: 20110124
  2. ZOLEDRONIC [Suspect]
     Dates: start: 20110117

REACTIONS (4)
  - PRESYNCOPE [None]
  - HYPERHIDROSIS [None]
  - SYNCOPE [None]
  - ASTHENIA [None]
